FAERS Safety Report 5963645-3 (Version None)
Quarter: 2008Q4

REPORT INFORMATION
  Report Type: 
  Country: None (occurrence: None)
  Receive Date: 20081124
  Receipt Date: 20081117
  Transmission Date: 20090506
  Serious: Yes (Life-Threatening, Hospitalization)
  Sender: FDA-Public Use
  Company Number: AT-PURDUE-DEU_2008_0004825

PATIENT
  Age: 15 Year
  Sex: Female

DRUGS (4)
  1. MORPHINE [Suspect]
     Indication: DRUG ABUSE
     Dosage: UNK, SEE TEXT
     Route: 042
     Dates: start: 20081001
  2. HYPNOTICS AND SEDATIVES [Suspect]
     Indication: DRUG ABUSE
     Route: 065
  3. BENZODIAZEPINE DERIVATIVES [Suspect]
  4. TETRAHYDROCANNABINOL [Suspect]

REACTIONS (4)
  - DRUG ABUSE [None]
  - DRUG TOXICITY [None]
  - LOSS OF CONSCIOUSNESS [None]
  - OVERDOSE [None]
